FAERS Safety Report 6857360-1 (Version None)
Quarter: 2010Q3

REPORT INFORMATION
  Report Type: 
  Country: None (occurrence: None)
  Receive Date: 20100719
  Receipt Date: 20100707
  Transmission Date: 20110219
  Serious: Yes (Other)
  Sender: FDA-Public Use
  Company Number: GB-PFIZER INC-2010072556

PATIENT
  Age: 74 Year
  Sex: Female

DRUGS (3)
  1. XALATAN [Suspect]
     Indication: GLAUCOMA
     Dosage: 1 EYE DROP, NIGHTLY
     Route: 047
     Dates: start: 20050101
  2. AZOPT [Concomitant]
     Dosage: 10 MG/ML, 2X/DAY IN BOTH EYES
     Route: 047
     Dates: start: 20070101
  3. CARBOMER [Concomitant]
     Dosage: 1 DROP, 2X DAILY IN BOTH EYES
     Route: 047
     Dates: start: 20050101

REACTIONS (6)
  - EYE INFLAMMATION [None]
  - EYE IRRITATION [None]
  - EYE PAIN [None]
  - OCULAR HYPERAEMIA [None]
  - VISION BLURRED [None]
  - VISUAL ACUITY REDUCED [None]
